FAERS Safety Report 5478381-X (Version None)
Quarter: 2007Q4

REPORT INFORMATION
  Report Type: 
  Country: None (occurrence: None)
  Receive Date: 20071005
  Receipt Date: 20071003
  Transmission Date: 20080405
  Serious: Yes (Hospitalization)
  Sender: FDA-Public Use
  Company Number: B0487881A

PATIENT
  Age: 34 Year
  Sex: Female

DRUGS (3)
  1. AUGMENTIN '125' [Suspect]
     Indication: TOXIC SHOCK SYNDROME
     Dosage: 625MG THREE TIMES PER DAY
     Route: 048
     Dates: start: 20070820, end: 20070821
  2. FLOXAPEN [Suspect]
     Indication: TOXIC SHOCK SYNDROME
     Dosage: 2G SIX TIMES PER DAY
     Route: 042
     Dates: start: 20070814, end: 20070821
  3. ROCEPHIN [Suspect]
     Indication: TOXIC SHOCK SYNDROME
     Dosage: 2G PER DAY
     Route: 042
     Dates: start: 20070814, end: 20070817

REACTIONS (6)
  - ILL-DEFINED DISORDER [None]
  - RASH ERYTHEMATOUS [None]
  - RASH MACULAR [None]
  - RASH PRURITIC [None]
  - SKIN LESION [None]
  - URTICARIA [None]
